FAERS Safety Report 7709592-8 (Version None)
Quarter: 2011Q3

REPORT INFORMATION
  Report Type: 
  Country: None (occurrence: None)
  Receive Date: 20110825
  Receipt Date: 20110810
  Transmission Date: 20111222
  Serious: Yes (Death)
  Sender: FDA-Public Use
  Company Number: US-GLAXOSMITHKLINE-A0834432A

PATIENT
  Age: 72 Year
  Sex: Male
  Weight: 102.3 kg

DRUGS (5)
  1. LIPITOR [Concomitant]
  2. TOPROL-XL [Concomitant]
  3. NORVASC [Concomitant]
  4. AVANDIA [Suspect]
     Indication: DIABETES MELLITUS
     Route: 048
     Dates: start: 19990501, end: 20090111
  5. ENALAPRIL MALEATE [Concomitant]

REACTIONS (6)
  - DISEASE PROGRESSION [None]
  - CEREBROVASCULAR DISORDER [None]
  - TRANSIENT ISCHAEMIC ATTACK [None]
  - CEREBROVASCULAR ACCIDENT [None]
  - ATRIAL FIBRILLATION [None]
  - CARDIAC FAILURE CONGESTIVE [None]
